FAERS Safety Report 5455031-X (Version None)
Quarter: 2007Q3

REPORT INFORMATION
  Report Type: 
  Country: None (occurrence: None)
  Receive Date: 20070918
  Receipt Date: 20070911
  Transmission Date: 20080115
  Serious: Yes (Other)
  Sender: FDA-Public Use
  Company Number: PHEH2007US12280

PATIENT
  Age: 65 Year
  Sex: Female

DRUGS (7)
  1. DIOVAN [Suspect]
     Indication: HYPERTENSION
  2. NORVASC [Concomitant]
  3. CLONIDINE [Concomitant]
  4. ATENOLOL [Concomitant]
  5. ASPIRIN [Concomitant]
  6. LIPID MODIFYING AGENTS [Concomitant]
  7. INSULIN [Concomitant]

REACTIONS (2)
  - RENAL FAILURE [None]
  - TYPE 1 DIABETES MELLITUS [None]
